FAERS Safety Report 13659535 (Version 1)
Quarter: 2017Q2

REPORT INFORMATION
  Report Type: Spontaneous
  Country: JP (occurrence: JP)
  Receive Date: 20170616
  Receipt Date: 20170616
  Transmission Date: 20170830
  Serious: Yes (Other)
  Sender: FDA-Public Use
  Company Number: JP-GLAXOSMITHKLINE-JP2017JPN085970

PATIENT
  Age: 22 Year
  Sex: Female

DRUGS (1)
  1. VALTREX [Suspect]
     Active Substance: VALACYCLOVIR HYDROCHLORIDE
     Indication: GENITAL HERPES
     Dosage: UNK
     Route: 048
     Dates: end: 20170603

REACTIONS (6)
  - Hypersensitivity [Unknown]
  - Skin erosion [Unknown]
  - Breast feeding [Unknown]
  - Rash [Unknown]
  - Lymphadenopathy [Unknown]
  - Dyspnoea [Unknown]
